FAERS Safety Report 12057570 (Version 1)
Quarter: 2016Q1

REPORT INFORMATION
  Report Type: Spontaneous
  Country: HU (occurrence: HU)
  Receive Date: 20160210
  Receipt Date: 20160210
  Transmission Date: 20160526
  Serious: Yes (Hospitalization)
  Sender: FDA-Public Use
  Company Number: HU-AMGEN-HUNSP2016014126

PATIENT
  Age: 69 Year
  Sex: Female

DRUGS (6)
  1. DESLORATADIN [Concomitant]
     Dosage: UNK
  2. PANTOPRAZOL [Concomitant]
     Active Substance: PANTOPRAZOLE SODIUM
     Dosage: UNK
  3. MELOXICAM. [Concomitant]
     Active Substance: MELOXICAM
     Dosage: UNK
  4. STILNOX [Concomitant]
     Active Substance: ZOLPIDEM TARTRATE
     Dosage: UNK
  5. ENBREL [Suspect]
     Active Substance: ETANERCEPT
     Indication: RHEUMATOID ARTHRITIS
     Dosage: UNK
     Route: 065
     Dates: start: 20160113
  6. COVEREX [Concomitant]
     Dosage: UNK

REACTIONS (7)
  - Hypoaesthesia oral [Unknown]
  - Abdominal pain lower [Unknown]
  - Lip swelling [Unknown]
  - Swelling face [Unknown]
  - Dyspnoea [Unknown]
  - Dysphagia [Unknown]
  - Mouth swelling [Unknown]

NARRATIVE: CASE EVENT DATE: 20160114
